FAERS Safety Report 7628826-1 (Version None)
Quarter: 2011Q3

REPORT INFORMATION
  Report Type: 
  Country: None (occurrence: None)
  Receive Date: 20110722
  Receipt Date: 20110713
  Transmission Date: 20111222
  Serious: Yes (Hospitalization)
  Sender: FDA-Public Use
  Company Number: US-EISAI INC-E7389-01310-SPO-US

PATIENT
  Sex: Female

DRUGS (1)
  1. HALAVEN [Suspect]
     Dosage: UNKNOWN
     Route: 041
     Dates: start: 20110712

REACTIONS (2)
  - JUGULAR VEIN THROMBOSIS [None]
  - RESPIRATORY ARREST [None]
